FAERS Safety Report 14347399 (Version 1)
Quarter: 2018Q1

REPORT INFORMATION
  Report Type: Spontaneous
  Country: US (occurrence: US)
  Receive Date: 20180102
  Receipt Date: 20180102
  Transmission Date: 20180509
  Serious: Yes (Other)
  Sender: FDA-Public Use
  Company Number: None

PATIENT
  Age: 54 Year
  Sex: Female
  Weight: 72.45 kg

DRUGS (1)
  1. BUPRENORPHINE/NALOXONE [Suspect]
     Active Substance: BUPRENORPHINE\NALOXONE
     Indication: DRUG DEPENDENCE
     Route: 060
     Dates: start: 20171205, end: 20180102

REACTIONS (5)
  - Dizziness [None]
  - Nausea [None]
  - Drug ineffective [None]
  - Dyspnoea [None]
  - Rhinorrhoea [None]

NARRATIVE: CASE EVENT DATE: 20171221
